FAERS Safety Report 21063826 (Version 1)
Quarter: 2022Q3

REPORT INFORMATION
  Report Type: Spontaneous
  Country: US (occurrence: US)
  Receive Date: 20220711
  Receipt Date: 20220711
  Transmission Date: 20221026
  Serious: Yes (Other)
  Sender: FDA-Public Use
  Company Number: US-SA-SAC20220707000013

PATIENT
  Age: 61 Year
  Sex: Male

DRUGS (1)
  1. ZANTAC [Suspect]
     Active Substance: RANITIDINE HYDROCHLORIDE
     Dosage: UNK, QW (UNKNOWN AT THIS TIME,QW)
     Dates: start: 200601, end: 201912

REACTIONS (2)
  - Hepatic cancer [Unknown]
  - Lung neoplasm malignant [Unknown]

NARRATIVE: CASE EVENT DATE: 20200101
